FAERS Safety Report 16258122 (Version 1)
Quarter: 2019Q2

REPORT INFORMATION
  Report Type: Spontaneous
  Country: FR (occurrence: FR)
  Receive Date: 20190430
  Receipt Date: 20190430
  Transmission Date: 20190711
  Serious: Yes (Hospitalization, Other)
  Sender: FDA-Public Use
  Company Number: FR-PFIZER INC-2019177922

PATIENT
  Age: 75 Year
  Sex: Female

DRUGS (5)
  1. FLUOROURACIL. [Suspect]
     Active Substance: FLUOROURACIL
     Indication: ADENOCARCINOMA OF COLON
     Dosage: 4050 MG, CYCLIC ( 2 WEEK)
     Route: 042
     Dates: start: 20190115, end: 20190312
  2. IRINOTECAN HCL [Suspect]
     Active Substance: IRINOTECAN HYDROCHLORIDE
     Indication: ADENOCARCINOMA OF COLON
     Dosage: 240 MG, CYCLIC (2 WEEK)
     Route: 042
     Dates: start: 20190115, end: 20190312
  3. ATROPINE. [Suspect]
     Active Substance: ATROPINE
     Indication: PREMEDICATION
     Dosage: 1 DF, CYCLIC (2 WEEK)
     Route: 042
     Dates: start: 20190115, end: 20190312
  4. CALCIUM FOLINATE [Suspect]
     Active Substance: LEUCOVORIN CALCIUM
     Indication: ADENOCARCINOMA OF COLON
     Dosage: 340 MG, CYCLIC (2 WEEK)
     Route: 042
     Dates: start: 20190115, end: 20190312
  5. ZALTRAP [Suspect]
     Active Substance: ZIV-AFLIBERCEPT
     Indication: ADENOCARCINOMA OF COLON
     Dosage: 250 MG, CYCLIC (2 WEEK)
     Route: 042
     Dates: start: 20190115, end: 20190312

REACTIONS (3)
  - Hypertension [Unknown]
  - Haemorrhagic stroke [Unknown]
  - Dysphonia [Unknown]

NARRATIVE: CASE EVENT DATE: 201902
